FAERS Safety Report 23245603 (Version 1)
Quarter: 2023Q4

REPORT INFORMATION
  Report Type: Spontaneous
  Country: DE (occurrence: DE)
  Receive Date: 20231130
  Receipt Date: 20231130
  Transmission Date: 20240110
  Serious: Yes (Hospitalization, Other)
  Sender: FDA-Public Use
  Company Number: DE-DCGMA-23202172

PATIENT
  Age: 46 Year
  Sex: Female
  Weight: 60 kg

DRUGS (1)
  1. CARBOPLATIN [Suspect]
     Active Substance: CARBOPLATIN
     Indication: Ovarian cancer recurrent
     Dosage: 333.6 MILLIGRAM
     Route: 042
     Dates: start: 20230719

REACTIONS (6)
  - Hypertension [Recovering/Resolving]
  - Tachycardia [Recovering/Resolving]
  - Breath sounds [Recovering/Resolving]
  - Eye movement disorder [Recovering/Resolving]
  - General physical health deterioration [Recovering/Resolving]
  - Hyperhidrosis [Recovering/Resolving]

NARRATIVE: CASE EVENT DATE: 20231005
